FAERS Safety Report 25722994 (Version 1)
Quarter: 2025Q3

REPORT INFORMATION
  Report Type: Report from Study
  Country: US (occurrence: US)
  Receive Date: 20250825
  Receipt Date: 20250825
  Transmission Date: 20251021
  Serious: Yes (Other)
  Sender: BAYER HEALTHCARE LLC
  Company Number: US-BAYER-2025A109787

PATIENT

DRUGS (1)
  1. BAYER RAPID RELIEF [Suspect]
     Active Substance: ASPIRIN\CAFFEINE
     Indication: Back pain
     Route: 048

REACTIONS (3)
  - Choking [Unknown]
  - Cough [Unknown]
  - Product solubility abnormal [Unknown]
